FAERS Safety Report 9041289 (Version 1)
Quarter: 2013Q1

REPORT INFORMATION
  Report Type: Spontaneous
  Country: US (occurrence: None)
  Receive Date: 20130123
  Receipt Date: 20130123
  Transmission Date: 20140127
  Serious: Yes (Hospitalization)
  Sender: FDA-Public Use
  Company Number: None

PATIENT
  Age: 35 Month
  Sex: Male
  Weight: 10.96 kg

DRUGS (1)
  1. ANAKINRA [Suspect]
     Indication: CHRONIC INFANTILE NEUROLOGICAL CUTANEOUS AND ARTICULAR SYNDROME
     Dosage: 5.5MG/KG/DAY   DAILY?ANAKINRA/KINERET

REACTIONS (9)
  - Cough [None]
  - Upper respiratory tract congestion [None]
  - Vomiting [None]
  - Hypophagia [None]
  - Dehydration [None]
  - Post lumbar puncture syndrome [None]
  - Poor venous access [None]
  - Nasal congestion [None]
  - Upper respiratory tract infection [None]
